FAERS Safety Report 14282208 (Version 2)
Quarter: 2018Q1

REPORT INFORMATION
  Report Type: Spontaneous
  Country: HU (occurrence: HU)
  Receive Date: 20171213
  Receipt Date: 20180315
  Transmission Date: 20180508
  Serious: Yes (Other)
  Sender: FDA-Public Use
  Company Number: HU-REGENERON PHARMACEUTICALS, INC.-2017-28892

PATIENT

DRUGS (2)
  1. EYLEA [Suspect]
     Active Substance: AFLIBERCEPT
     Indication: NEOVASCULAR AGE-RELATED MACULAR DEGENERATION
     Dosage: UNK (FIRST INJECTION)
     Route: 031
     Dates: start: 20171006, end: 20171006
  2. EYLEA [Suspect]
     Active Substance: AFLIBERCEPT
     Dosage: UNK, ONCE
     Route: 031
     Dates: start: 201712, end: 201712

REACTIONS (1)
  - Deep vein thrombosis [Recovering/Resolving]

NARRATIVE: CASE EVENT DATE: 20171106
